FAERS Safety Report 9228522 (Version 1)
Quarter: 2013Q2

REPORT INFORMATION
  Report Type: Spontaneous
  Country: US (occurrence: None)
  Receive Date: 20130411
  Receipt Date: 20130411
  Transmission Date: 20140414
  Serious: Yes (Hospitalization)
  Sender: FDA-Public Use
  Company Number: None

PATIENT
  Age: 82 Year
  Sex: Female
  Weight: 50 kg

DRUGS (7)
  1. IBUPROFEN [Suspect]
     Indication: BLADDER PAIN
     Route: 048
  2. METFORMIN [Concomitant]
  3. LOSARTAN [Concomitant]
  4. ESOMEPRAZOLE [Concomitant]
  5. HYDROXYZINE [Concomitant]
  6. ROSUVASTATIN [Concomitant]
  7. DIAZEPAM [Concomitant]

REACTIONS (4)
  - Upper gastrointestinal haemorrhage [None]
  - Urinary tract infection [None]
  - Renal failure acute [None]
  - Hypophagia [None]
